FAERS Safety Report 7724965-5 (Version None)
Quarter: 2011Q3

REPORT INFORMATION
  Report Type: 
  Country: None (occurrence: None)
  Receive Date: 20110901
  Receipt Date: 20110819
  Transmission Date: 20111222
  Serious: Yes (Other)
  Sender: FDA-Public Use
  Company Number: US-MYLANLABS-2011S1017757

PATIENT
  Age: 49 Year
  Sex: Female

DRUGS (5)
  1. METHOTREXATE [Suspect]
     Indication: LANGERHANS' CELL HISTIOCYTOSIS
     Route: 065
  2. FLUDARABINE PHOSPHATE [Suspect]
     Indication: LANGERHANS' CELL HISTIOCYTOSIS
     Route: 065
  3. CLADRIBINE [Suspect]
     Indication: LANGERHANS' CELL HISTIOCYTOSIS
     Route: 065
  4. VINBLASTINE SULFATE [Suspect]
     Indication: LANGERHANS' CELL HISTIOCYTOSIS
     Route: 065
  5. CYCLOPHOSPHAMIDE [Suspect]
     Indication: LANGERHANS' CELL HISTIOCYTOSIS
     Route: 065

REACTIONS (3)
  - NEUTROPENIA [None]
  - NEUROPATHY PERIPHERAL [None]
  - SKIN TOXICITY [None]
